FAERS Safety Report 15677991 (Version 1)
Quarter: 2018Q4

REPORT INFORMATION
  Report Type: Spontaneous
  Country: US (occurrence: US)
  Receive Date: 20181130
  Receipt Date: 20181130
  Transmission Date: 20190205
  Serious: Yes (Other)
  Sender: FDA-Public Use
  Company Number: US-MYLANLABS-2018M1087534

PATIENT

DRUGS (2)
  1. NADOLOL TABLETS, USP [Suspect]
     Active Substance: NADOLOL
     Indication: ARRHYTHMIA
     Dosage: 40 MILLIGRAM
     Route: 048
     Dates: start: 20181106
  2. NADOLOL TABLETS, USP [Suspect]
     Active Substance: NADOLOL
     Dosage: UNK
     Dates: start: 20181106

REACTIONS (1)
  - Drug ineffective for unapproved indication [Not Recovered/Not Resolved]

NARRATIVE: CASE EVENT DATE: 20181106
